FAERS Safety Report 25531105 (Version 4)
Quarter: 2025Q4

REPORT INFORMATION
  Report Type: Spontaneous
  Country: US (occurrence: US)
  Receive Date: 20250708
  Receipt Date: 20251028
  Transmission Date: 20260118
  Serious: Yes (Hospitalization, Other)
  Sender: CSL BEHRING
  Company Number: US-BEH-2025211880

PATIENT
  Age: 64 Year
  Sex: Male

DRUGS (3)
  1. HUMATE-P [Suspect]
     Active Substance: HUMAN COAGULATION FACTOR VIII/VON WILLEBRAND FACTOR COMPLEX
     Indication: Von Willebrand^s disease
     Dosage: 3150 IU, PRN (3150 RCOF UNITS (2835-3465) SLOW IV PUSH AS NEEDED FOR MINOR/MILD BLEEDS)
     Route: 042
     Dates: start: 202406
  2. HUMATE-P [Suspect]
     Active Substance: HUMAN COAGULATION FACTOR VIII/VON WILLEBRAND FACTOR COMPLEX
     Dosage: 6300 IU, PRN (6300 RCOF UNITS (5670-6930) SLOW IV PUSH AS NEEDED FOR MAJOR BLEEDS)
     Route: 042
     Dates: start: 202406
  3. VONVENDI [Concomitant]
     Active Substance: VON WILLEBRAND FACTOR (RECOMBINANT)
     Dosage: 2000 RCOF UNITS (1800-2200)
     Route: 042

REACTIONS (7)
  - Post procedural haemorrhage [Unknown]
  - Haemorrhage [Unknown]
  - Bone operation [Unknown]
  - Internal haemorrhage [Unknown]
  - Haemarthrosis [Unknown]
  - Haemorrhoids [Unknown]
  - Injury [Unknown]

NARRATIVE: CASE EVENT DATE: 20250630
